FAERS Safety Report 5647938-5 (Version None)
Quarter: 2008Q1

REPORT INFORMATION
  Report Type: 
  Country: None (occurrence: None)
  Receive Date: 20080229
  Receipt Date: 20080215
  Transmission Date: 20080703
  Serious: Yes (Other)
  Sender: FDA-Public Use
  Company Number: 2008S1000049

PATIENT
  Age: 79 Year
  Sex: Male
  Weight: 81.6475 kg

DRUGS (2)
  1. OLUX E [Suspect]
     Indication: PRURITUS
     Dosage: 0.05 PCT; QD; TOP
     Route: 061
     Dates: start: 20080211, end: 20080212
  2. EVOCLIN [Suspect]
     Indication: PRURITUS
     Dosage: 1 PCT; QD; TOP
     Route: 061
     Dates: start: 20080211, end: 20080212

REACTIONS (2)
  - DRUG INEFFECTIVE [None]
  - HEADACHE [None]
